FAERS Safety Report 9289221 (Version 1)
Quarter: 2013Q2

REPORT INFORMATION
  Report Type: Spontaneous
  Country: US (occurrence: US)
  Receive Date: 20130514
  Receipt Date: 20130514
  Transmission Date: 20140414
  Serious: No
  Sender: FDA-Public Use
  Company Number: US-GLAXOSMITHKLINE-A1018426A

PATIENT
  Age: 19 Year
  Sex: Male

DRUGS (2)
  1. VELTIN [Suspect]
     Indication: ACNE
     Dosage: 1APP AT NIGHT
     Route: 061
     Dates: start: 20130326
  2. NO CONCURRENT MEDICATION [Concomitant]

REACTIONS (3)
  - Acne [Recovering/Resolving]
  - Skin discolouration [Not Recovered/Not Resolved]
  - Dry skin [Unknown]
